FAERS Safety Report 4289110-X (Version None)
Quarter: 2004Q1

REPORT INFORMATION
  Report Type: 
  Country: None (occurrence: None)
  Receive Date: 20040209
  Receipt Date: 20040209
  Transmission Date: 20041129
  Serious: Yes (Other)
  Sender: FDA-Public Use
  Company Number: None

PATIENT
  Age: 12 Year
  Sex: Female
  Weight: 20.4119 kg

DRUGS (4)
  1. HALOPERIDOL  0.5MG TAB  N/A [Suspect]
     Dosage: 1/2 TAB BID ORAL
     Route: 048
     Dates: start: 20040119, end: 20040126
  2. EFFEXOR XR [Concomitant]
  3. TEGRETOL [Concomitant]
  4. RISPERDAL [Concomitant]

REACTIONS (3)
  - ARTHRALGIA [None]
  - OEDEMA [None]
  - TENDERNESS [None]
